FAERS Safety Report 8063815-7 (Version None)
Quarter: 2012Q1

REPORT INFORMATION
  Report Type: 
  Country: None (occurrence: None)
  Receive Date: 20120123
  Receipt Date: 20120112
  Transmission Date: 20120608
  Serious: Yes (Hospitalization)
  Sender: FDA-Public Use
  Company Number: US-BAYER-2011-087461

PATIENT
  Age: 42 Year
  Sex: Female
  Weight: 81.179 kg

DRUGS (12)
  1. AMOXIL [Concomitant]
     Dosage: 875 MG, BID
     Route: 048
  2. B COMPLEX [B3,B6,B2,B1 HCL] [Concomitant]
     Dosage: 1 DF, ONCE
     Route: 048
  3. ZYRTEC [Concomitant]
     Dosage: 10 MG, ONCE
     Route: 048
  4. YAZ [Suspect]
     Dosage: UNK
     Route: 048
     Dates: start: 20070101, end: 20090101
  5. ZOLOFT [Concomitant]
     Dosage: 50 MG, UNK
     Dates: start: 20090625
  6. PROMETHAZINE HYDROCHLORIDE [Concomitant]
     Dosage: 25 MG, UNK
     Dates: start: 20090705
  7. AZITHROMYCIN [Concomitant]
     Dosage: 250 MG, UNK
     Dates: start: 20090706
  8. ALLEGRA [Concomitant]
     Dosage: 180 MG, UNK
     Dates: start: 20090716
  9. TAMIFLU [Concomitant]
     Dosage: 75 MG, UNK
     Dates: start: 20090810
  10. WOMEN'S MULTI HEALTH [Concomitant]
     Dosage: 1 DF, ONCE
     Route: 048
  11. VITAMIN D [Concomitant]
     Dosage: 1 DF, ONCE
     Route: 048
  12. MUCINEX [Concomitant]
     Dosage: UNK

REACTIONS (4)
  - GALLBLADDER DISORDER [None]
  - PAIN [None]
  - INJURY [None]
  - CHOLECYSTITIS CHRONIC [None]
